FAERS Safety Report 11349514 (Version 2)
Quarter: 2015Q3

REPORT INFORMATION
  Report Type: Report from Study
  Country: FR (occurrence: FR)
  Receive Date: 20150807
  Receipt Date: 20150807
  Transmission Date: 20151125
  Serious: Yes (Death)
  Sender: FDA-Public Use
  Company Number: PHHY2015FR094586

PATIENT
  Sex: Male

DRUGS (5)
  1. MOTILIUM [Concomitant]
     Active Substance: DOMPERIDONE
     Indication: PRODUCT USED FOR UNKNOWN INDICATION
     Route: 065
  2. LDK378 [Suspect]
     Active Substance: CERITINIB
     Indication: LUNG ADENOCARCINOMA
     Dosage: 750 MG, QD
     Route: 065
     Dates: start: 201412
  3. LDK378 [Suspect]
     Active Substance: CERITINIB
     Indication: HEPATIC CANCER METASTATIC
  4. LDK378 [Suspect]
     Active Substance: CERITINIB
     Indication: MALIGNANT NEOPLASM OF PLEURA METASTATIC
  5. OXYNORM [Concomitant]
     Active Substance: OXYCODONE HYDROCHLORIDE
     Indication: PRODUCT USED FOR UNKNOWN INDICATION
     Route: 065

REACTIONS (2)
  - Malignant neoplasm progression [Fatal]
  - Lung adenocarcinoma [Fatal]
